FAERS Safety Report 12669155 (Version 1)
Quarter: 2016Q3

REPORT INFORMATION
  Report Type: Report from Study
  Country: US (occurrence: US)
  Receive Date: 20160819
  Receipt Date: 20160819
  Transmission Date: 20161109
  Serious: Yes (Other)
  Sender: FDA-Public Use
  Company Number: US-JNJFOC-20140717163

PATIENT
  Age: 56 Year
  Sex: Female
  Weight: 53.07 kg

DRUGS (1)
  1. REMICADE [Suspect]
     Active Substance: INFLIXIMAB
     Indication: CROHN^S DISEASE
     Dosage: ALSO REPORTED AS ABOUT THREE YEARS AGO STARTED INFLIXIMAB
     Route: 042
     Dates: start: 2012

REACTIONS (3)
  - Nasopharyngitis [Recovered/Resolved]
  - Ill-defined disorder [Unknown]
  - Lyme disease [Unknown]

NARRATIVE: CASE EVENT DATE: 20140721
